FAERS Safety Report 10789624 (Version 1)
Quarter: 2015Q1

REPORT INFORMATION
  Report Type: Spontaneous
  Country: JP (occurrence: JP)
  Receive Date: 20150212
  Receipt Date: 20150212
  Transmission Date: 20150721
  Serious: Yes (Other)
  Sender: FDA-Public Use
  Company Number: US-ASTRAZENECA-2014SE69364

PATIENT
  Age: 51 Year
  Sex: Male
  Weight: 94 kg

DRUGS (16)
  1. TENELIA [Concomitant]
     Active Substance: CITALOPRAM HYDROBROMIDE
     Indication: TYPE 2 DIABETES MELLITUS
     Route: 048
     Dates: start: 20140711
  2. ACTOS [Concomitant]
     Active Substance: PIOGLITAZONE HYDROCHLORIDE
     Indication: TYPE 2 DIABETES MELLITUS
     Route: 048
     Dates: start: 2008
  3. METGLUCO [Concomitant]
     Active Substance: METFORMIN HYDROCHLORIDE
     Indication: TYPE 2 DIABETES MELLITUS
     Route: 048
     Dates: start: 20140711
  4. AMARYL [Concomitant]
     Active Substance: GLIMEPIRIDE
     Indication: TYPE 2 DIABETES MELLITUS
     Route: 048
     Dates: start: 2006
  5. ARTIST [Concomitant]
     Active Substance: CARVEDILOL
     Route: 048
     Dates: start: 20140711
  6. DIOVAN [Concomitant]
     Active Substance: VALSARTAN
     Route: 048
     Dates: start: 20140711
  7. LIPIDIL [Concomitant]
     Active Substance: FENOFIBRATE
     Route: 048
     Dates: start: 20140711
  8. LANTUS [Concomitant]
     Active Substance: INSULIN GLARGINE
     Route: 065
     Dates: start: 20140711
  9. FORXIGA [Suspect]
     Active Substance: DAPAGLIFLOZIN
     Indication: TYPE 2 DIABETES MELLITUS
     Route: 048
     Dates: start: 20140711, end: 20140906
  10. ZETIA [Concomitant]
     Active Substance: EZETIMIBE
     Route: 048
     Dates: start: 20140711
  11. SELARA [Concomitant]
     Active Substance: EPLERENONE
     Route: 048
     Dates: start: 20140711
  12. NIFELANTERN CR [Concomitant]
     Active Substance: NIFEDIPINE
     Dosage: AFTER DINNER
     Route: 048
     Dates: start: 20140711
  13. FLUITRAN [Concomitant]
     Active Substance: TRICHLORMETHIAZIDE
     Route: 048
     Dates: start: 20140711
  14. NIFELANTERN CR [Concomitant]
     Active Substance: NIFEDIPINE
     Route: 048
     Dates: start: 20140711
  15. HUMALOG [Concomitant]
     Active Substance: INSULIN LISPRO
     Route: 065
     Dates: start: 20140711
  16. LANTUS [Concomitant]
     Active Substance: INSULIN GLARGINE
     Dosage: DOSE UNKNOWN
     Route: 065
     Dates: start: 2010

REACTIONS (1)
  - Myasthenia gravis [Unknown]

NARRATIVE: CASE EVENT DATE: 20140830
